FAERS Safety Report 14317561 (Version 1)
Quarter: 2017Q4

REPORT INFORMATION
  Report Type: Spontaneous
  Country: US (occurrence: US)
  Receive Date: 20171221
  Receipt Date: 20171221
  Transmission Date: 20180321
  Serious: No
  Sender: FDA-Public Use
  Company Number: None

PATIENT
  Age: 51 Year
  Sex: Female

DRUGS (2)
  1. CAPECITABINE. [Suspect]
     Active Substance: CAPECITABINE
     Indication: BREAST CANCER FEMALE
     Dosage: TAKE 3-500MG WITH 1-150MG BID PO
     Route: 048
     Dates: start: 20171109
  2. CAPECITABINE. [Suspect]
     Active Substance: CAPECITABINE
     Dosage: TAKE 3-500MG WITH 1-150MG BID PO
     Route: 048
     Dates: start: 20171109, end: 20171220

REACTIONS (3)
  - Rash [None]
  - Pain in extremity [None]
  - Erythema [None]

NARRATIVE: CASE EVENT DATE: 20171109
